FAERS Safety Report 24874045 (Version 1)
Quarter: 2025Q1

REPORT INFORMATION
  Report Type: Spontaneous
  Country: US (occurrence: US)
  Receive Date: 20250122
  Receipt Date: 20250122
  Transmission Date: 20250408
  Serious: No
  Sender: BAYER HEALTHCARE PHARMACEUTICALS INC.
  Company Number: US-BAYER-2025A008236

PATIENT
  Age: 48 Year
  Sex: Female

DRUGS (2)
  1. MIRENA [Suspect]
     Active Substance: LEVONORGESTREL
     Indication: Intrauterine contraception
     Dosage: 20?G/DAY
     Route: 015
     Dates: start: 201610
  2. LENVIMA [Suspect]
     Active Substance: LENVATINIB

REACTIONS (5)
  - Nausea [None]
  - Decreased appetite [None]
  - Weight decreased [None]
  - Device use issue [None]
  - Hypertension [None]
